FAERS Safety Report 9806390 (Version 1)
Quarter: 2014Q1

REPORT INFORMATION
  Report Type: Spontaneous
  Country: US (occurrence: US)
  Receive Date: 20140109
  Receipt Date: 20140109
  Transmission Date: 20141002
  Serious: Yes (Other)
  Sender: FDA-Public Use
  Company Number: US-BAYER-2014-003779

PATIENT
  Age: 44 Year
  Sex: Female
  Weight: 63 kg

DRUGS (3)
  1. ALKA-SELTZER ORIGINAL [Suspect]
     Dosage: 2 DF, PRN
     Route: 048
     Dates: end: 20140107
  2. IMODIUM [Concomitant]
  3. IBUPROFEN [Concomitant]

REACTIONS (1)
  - Blood urine present [None]
